FAERS Safety Report 23481439 (Version 1)
Quarter: 2024Q1

REPORT INFORMATION
  Report Type: Spontaneous
  Country: FR (occurrence: FR)
  Receive Date: 20240205
  Receipt Date: 20240205
  Transmission Date: 20240410
  Serious: Yes (Other)
  Sender: FDA-Public Use
  Company Number: None

PATIENT
  Age: 86 Year
  Sex: Female
  Weight: 48 kg

DRUGS (1)
  1. SODIUM CHLORIDE [Suspect]
     Active Substance: SODIUM CHLORIDE
     Indication: Product administration error
     Dosage: 1 L (LITRE) AT AN UNSPECIFIED FREQEUNCY (DOSAGE TEXT: 1 LITRE/24H)
     Route: 042
     Dates: start: 20240119, end: 20240119

REACTIONS (4)
  - Hypoxia [Recovered/Resolved]
  - Oxygen saturation decreased [Recovered/Resolved]
  - Product administration error [Recovered/Resolved]
  - Wrong rate [Recovered/Resolved]

NARRATIVE: CASE EVENT DATE: 20240119
